FAERS Safety Report 11352004 (Version 1)
Quarter: 2015Q3

REPORT INFORMATION
  Report Type: Spontaneous
  Country: US (occurrence: US)
  Receive Date: 20150807
  Receipt Date: 20150807
  Transmission Date: 20151125
  Serious: No
  Sender: FDA-Public Use
  Company Number: US-JNJFOC-20150314843

PATIENT
  Age: 34 Year
  Sex: Female

DRUGS (7)
  1. ZYRTEC-D [Suspect]
     Active Substance: CETIRIZINE HYDROCHLORIDE\PSEUDOEPHEDRINE HYDROCHLORIDE
     Indication: IRRITABILITY
     Dosage: 2 1/2 DAYS
     Route: 048
     Dates: start: 20150314, end: 20150316
  2. ZYRTEC-D [Suspect]
     Active Substance: CETIRIZINE HYDROCHLORIDE\PSEUDOEPHEDRINE HYDROCHLORIDE
     Indication: HALLUCINATION
     Dosage: 2 1/2 DAYS
     Route: 048
     Dates: start: 20150314, end: 20150316
  3. ZYRTEC-D [Suspect]
     Active Substance: CETIRIZINE HYDROCHLORIDE\PSEUDOEPHEDRINE HYDROCHLORIDE
     Indication: NERVOUSNESS
     Dosage: 2 1/2 DAYS
     Route: 048
     Dates: start: 20150314, end: 20150316
  4. ZYRTEC-D [Suspect]
     Active Substance: CETIRIZINE HYDROCHLORIDE\PSEUDOEPHEDRINE HYDROCHLORIDE
     Indication: MIDDLE EAR EFFUSION
     Dosage: 2 1/2 DAYS
     Route: 048
     Dates: start: 20150314, end: 20150316
  5. ZYRTEC-D [Suspect]
     Active Substance: CETIRIZINE HYDROCHLORIDE\PSEUDOEPHEDRINE HYDROCHLORIDE
     Indication: TREMOR
     Dosage: 2 1/2 DAYS
     Route: 048
     Dates: start: 20150314, end: 20150316
  6. ADVIL [Concomitant]
     Active Substance: IBUPROFEN
     Indication: PAIN
     Dosage: EVERY 7-8 HOURS, 2 DAYS
     Route: 065
     Dates: start: 20150313
  7. ZYRTEC-D [Suspect]
     Active Substance: CETIRIZINE HYDROCHLORIDE\PSEUDOEPHEDRINE HYDROCHLORIDE
     Indication: OROPHARYNGEAL PAIN
     Dosage: 2 1/2 DAYS
     Route: 048
     Dates: start: 20150314, end: 20150316

REACTIONS (6)
  - Nervousness [Recovering/Resolving]
  - Irritability [Recovering/Resolving]
  - Inappropriate schedule of drug administration [Unknown]
  - Drug ineffective for unapproved indication [Unknown]
  - Agitation [Recovering/Resolving]
  - Product use issue [Unknown]
